FAERS Safety Report 9365518 (Version 2)
Quarter: 2013Q3

REPORT INFORMATION
  Report Type: Spontaneous
  Country: US (occurrence: US)
  Receive Date: 20130625
  Receipt Date: 20130711
  Transmission Date: 20140515
  Serious: No
  Sender: FDA-Public Use
  Company Number: US-BIOGENIDEC-2013BI054968

PATIENT
  Sex: Female

DRUGS (2)
  1. TYSABRI [Suspect]
     Indication: MULTIPLE SCLEROSIS
     Route: 042
     Dates: start: 20120611, end: 20130517
  2. AMPYRA [Concomitant]
     Indication: MULTIPLE SCLEROSIS
     Dates: start: 20111125

REACTIONS (5)
  - Gait disturbance [Not Recovered/Not Resolved]
  - Stress [Not Recovered/Not Resolved]
  - Energy increased [Recovered/Resolved]
  - Solar dermatitis [Recovered/Resolved]
  - Fatigue [Recovered/Resolved]
